FAERS Safety Report 12939661 (Version 1)
Quarter: 2016Q4

REPORT INFORMATION
  Report Type: Spontaneous
  Country: FR (occurrence: FR)
  Receive Date: 20161115
  Receipt Date: 20161115
  Transmission Date: 20170207
  Serious: Yes (Disabling)
  Sender: FDA-Public Use
  Company Number: FR-PFIZER INC-2016517834

PATIENT
  Age: 54 Year
  Sex: Female

DRUGS (3)
  1. SOLU-MEDROL [Suspect]
     Active Substance: METHYLPREDNISOLONE SODIUM SUCCINATE
     Indication: PEMPHIGUS
     Dosage: 500 MG, 1X/DAY
     Route: 040
     Dates: start: 20130415, end: 20130417
  2. CORTANCYL [Suspect]
     Active Substance: PREDNISONE
     Indication: PEMPHIGUS
     Dosage: 80 MG/DAY (1.2 MG/KG/DAY)
     Route: 048
     Dates: start: 20130418, end: 201305
  3. CORTANCYL [Suspect]
     Active Substance: PREDNISONE
     Dosage: TAPERED OFF
     Route: 048
     Dates: start: 201305, end: 201501

REACTIONS (4)
  - Spinal compression fracture [Recovered/Resolved with Sequelae]
  - Glaucoma [Recovered/Resolved with Sequelae]
  - Cataract [Recovered/Resolved with Sequelae]
  - Osteoporosis [Recovered/Resolved with Sequelae]

NARRATIVE: CASE EVENT DATE: 2014
